FAERS Safety Report 5321904-1 (Version None)
Quarter: 2007Q2

REPORT INFORMATION
  Report Type: 
  Country: None (occurrence: None)
  Receive Date: 20070510
  Receipt Date: 20070507
  Transmission Date: 20071010
  Serious: Yes (Other)
  Sender: FDA-Public Use
  Company Number: JP-MERCK-0704USA01595

PATIENT
  Age: 70 Year
  Sex: Female

DRUGS (3)
  1. FOSAMAX [Suspect]
     Indication: OSTEOPOROSIS
     Route: 048
     Dates: start: 20061117, end: 20070315
  2. MUCOSTA [Concomitant]
     Indication: GASTRITIS
     Route: 048
     Dates: start: 20041211, end: 20070208
  3. ETHYL PIPERIDINOACETYLAMINOBENZOATE [Concomitant]
     Indication: GASTRITIS
     Route: 048
     Dates: start: 20020101, end: 20070208

REACTIONS (1)
  - PLATELET COUNT DECREASED [None]
